FAERS Safety Report 6308951-8 (Version None)
Quarter: 2009Q3

REPORT INFORMATION
  Report Type: 
  Country: None (occurrence: None)
  Receive Date: 20090813
  Receipt Date: 20090803
  Transmission Date: 20100115
  Serious: Yes (Hospitalization)
  Sender: FDA-Public Use
  Company Number: FR-ABBOTT-09P-056-0589095-00

PATIENT
  Sex: Female

DRUGS (17)
  1. FORANE LIQUID FOR INHALATION [Suspect]
     Indication: GENERAL ANAESTHESIA
     Route: 055
     Dates: start: 20090422, end: 20090422
  2. DIANTALVIC [Suspect]
     Indication: PAIN
     Route: 048
     Dates: start: 20090425
  3. OETROGEL [Concomitant]
     Indication: DRUG USE FOR UNKNOWN INDICATION
  4. XANAX [Concomitant]
     Indication: DRUG USE FOR UNKNOWN INDICATION
     Dates: start: 20090421
  5. HYPNOVEL [Concomitant]
     Indication: DRUG USE FOR UNKNOWN INDICATION
     Dates: start: 20090422
  6. ATROPINE [Concomitant]
     Indication: DRUG USE FOR UNKNOWN INDICATION
     Dates: start: 20090422
  7. DIPRIVAN [Concomitant]
     Indication: GENERAL ANAESTHESIA
  8. SUFENTA PRESERVATIVE FREE [Concomitant]
     Indication: GENERAL ANAESTHESIA
  9. EPHEDRINE [Concomitant]
     Indication: GENERAL ANAESTHESIA
  10. CEPHAZOLINE [Concomitant]
     Indication: PROPHYLAXIS
  11. BUPIVACAINE [Concomitant]
     Indication: GENERAL ANAESTHESIA
  12. PARACETAMOL [Concomitant]
     Indication: PAIN
  13. ACUPAN [Concomitant]
     Indication: DRUG USE FOR UNKNOWN INDICATION
  14. MORPHINE [Concomitant]
     Indication: DRUG USE FOR UNKNOWN INDICATION
  15. LOVENOX [Concomitant]
     Indication: DRUG USE FOR UNKNOWN INDICATION
  16. UTROGESTAN [Concomitant]
     Indication: DRUG USE FOR UNKNOWN INDICATION
  17. MENOPHYTEA SOMMEIL [Concomitant]
     Indication: DRUG USE FOR UNKNOWN INDICATION

REACTIONS (1)
  - HEPATITIS ACUTE [None]
